FAERS Safety Report 8828934 (Version 2)
Quarter: 2013Q4

REPORT INFORMATION
  Report Type: Spontaneous
  Country: US (occurrence: US)
  Receive Date: 20121008
  Receipt Date: 20131112
  Transmission Date: 20140711
  Serious: Yes (Other)
  Sender: FDA-Public Use
  Company Number: US-JNJFOC-20120910949

PATIENT
  Age: 64 Year
  Sex: Female
  Weight: 92.08 kg

DRUGS (23)
  1. DURAGESIC [Suspect]
     Indication: BACK PAIN
     Route: 062
     Dates: end: 2013
  2. DURAGESIC [Suspect]
     Indication: BACK PAIN
     Route: 062
  3. DURAGESIC [Suspect]
     Indication: BACK PAIN
     Route: 062
     Dates: start: 2011, end: 20120922
  4. DURAGESIC [Suspect]
     Indication: BACK PAIN
     Route: 062
     Dates: start: 2013
  5. DURAGESIC [Suspect]
     Indication: PAIN
     Route: 062
     Dates: start: 2011, end: 20120922
  6. DURAGESIC [Suspect]
     Indication: PAIN
     Route: 062
     Dates: start: 2013
  7. DURAGESIC [Suspect]
     Indication: PAIN
     Route: 062
  8. DURAGESIC [Suspect]
     Indication: PAIN
     Route: 062
     Dates: end: 2013
  9. PERCOCET [Suspect]
     Indication: BREAKTHROUGH PAIN
     Dosage: 10-325 MG
     Route: 048
     Dates: start: 201306, end: 2013
  10. LORAZEPAM [Concomitant]
     Indication: ANXIETY
     Route: 048
     Dates: start: 1981
  11. NORTRIPTYLINE [Concomitant]
     Indication: DEPRESSION
     Route: 048
  12. NORTRIPTYLINE [Concomitant]
     Indication: DEPRESSION
     Route: 048
  13. VICODIN [Concomitant]
     Indication: PAIN
     Route: 048
     Dates: start: 200910
  14. AMLODIPINE [Concomitant]
     Indication: HYPERTENSION
     Route: 048
  15. AMBIEN [Concomitant]
     Indication: SLEEP DISORDER
     Route: 048
     Dates: start: 2002
  16. ATENOLOL [Concomitant]
     Indication: HYPERTENSION
     Route: 048
  17. HYDRALAZINE [Concomitant]
     Indication: HYPERTENSION
     Route: 048
  18. KLONOPIN [Concomitant]
     Indication: SLEEP DISORDER
     Route: 048
  19. KLONOPIN [Concomitant]
     Indication: BLOOD PRESSURE
     Route: 048
  20. LOSARTAN [Concomitant]
     Indication: HYPERTENSION
     Route: 048
  21. SOMA [Concomitant]
     Indication: MUSCLE RELAXANT THERAPY
     Dosage: OR AS NEEDED
     Route: 048
  22. TRAZEPAM [Concomitant]
     Indication: SLEEP DISORDER
     Route: 065
  23. PANTOPRAZOLE [Concomitant]
     Indication: GASTRIC DISORDER
     Route: 048

REACTIONS (17)
  - Hallucination [Recovered/Resolved]
  - Depression [Not Recovered/Not Resolved]
  - Drug dependence [Not Recovered/Not Resolved]
  - Bedridden [Recovered/Resolved]
  - Diarrhoea [Recovered/Resolved]
  - Nausea [Recovered/Resolved]
  - Malaise [Not Recovered/Not Resolved]
  - Breakthrough pain [Not Recovered/Not Resolved]
  - Inadequate analgesia [Not Recovered/Not Resolved]
  - Withdrawal syndrome [Recovered/Resolved]
  - Incorrect drug administration duration [Not Recovered/Not Resolved]
  - Drug dose omission [Not Recovered/Not Resolved]
  - Back injury [Not Recovered/Not Resolved]
  - Impaired driving ability [Not Recovered/Not Resolved]
  - Impaired work ability [Not Recovered/Not Resolved]
  - Emotional disorder [Recovered/Resolved]
  - Tremor [Recovered/Resolved]
